FAERS Safety Report 5258585-1 (Version None)
Quarter: 2007Q1

REPORT INFORMATION
  Report Type: 
  Country: None (occurrence: None)
  Receive Date: 20070305
  Receipt Date: 20070221
  Transmission Date: 20070707
  Serious: Yes (Death)
  Sender: FDA-Public Use
  Company Number: 237076

PATIENT
  Age: 47 Year
  Sex: Male

DRUGS (4)
  1. AVASTIN [Suspect]
     Indication: PANCREATIC CARCINOMA
  2. FLUOROURACIL [Concomitant]
  3. LEUCOVORIN CALCIUM [Concomitant]
  4. OXALIPLATIN [Concomitant]

REACTIONS (2)
  - CARDIAC FAILURE CONGESTIVE [None]
  - DISEASE PROGRESSION [None]
